FAERS Safety Report 16484651 (Version 1)
Quarter: 2019Q2

REPORT INFORMATION
  Report Type: Spontaneous
  Country: US (occurrence: US)
  Receive Date: 20190516
  Receipt Date: 20190516
  Transmission Date: 20190711
  Serious: No
  Sender: FDA-Public Use
  Company Number: None

PATIENT
  Age: 65 Year
  Sex: Female

DRUGS (3)
  1. REPATHA [Suspect]
     Active Substance: EVOLOCUMAB
     Indication: ARTERIOSCLEROSIS CORONARY ARTERY
  2. REPATHA [Suspect]
     Active Substance: EVOLOCUMAB
     Indication: DRUG THERAPY
  3. REPATHA [Suspect]
     Active Substance: EVOLOCUMAB
     Indication: DRUG THERAPY
     Route: 058
     Dates: start: 201712

REACTIONS (1)
  - Muscular weakness [None]
